FAERS Safety Report 11944988 (Version 3)
Quarter: 2016Q1

REPORT INFORMATION
  Report Type: Spontaneous
  Country: JP (occurrence: JP)
  Receive Date: 20160125
  Receipt Date: 20160317
  Transmission Date: 20160526
  Serious: Yes (Death)
  Sender: FDA-Public Use
  Company Number: PHHY2016JP008247

PATIENT
  Age: 88 Year

DRUGS (3)
  1. MYSLEE [Concomitant]
     Active Substance: ZOLPIDEM TARTRATE
     Indication: PRODUCT USED FOR UNKNOWN INDICATION
     Route: 065
  2. DIGOXIN. [Concomitant]
     Active Substance: DIGOXIN
     Indication: PRODUCT USED FOR UNKNOWN INDICATION
     Route: 065
  3. RIVASTACH [Suspect]
     Active Substance: RIVASTIGMINE
     Indication: DEMENTIA ALZHEIMER^S TYPE
     Dosage: 1.9 MG, QD (RIVASTIGMINE BASE 4.5 MG, PATCH 2.5)
     Route: 062
     Dates: start: 201512

REACTIONS (4)
  - Agitation [Unknown]
  - Asthenia [Fatal]
  - Decreased appetite [Unknown]
  - Initial insomnia [Unknown]

NARRATIVE: CASE EVENT DATE: 201601
